FAERS Safety Report 6801911-X (Version None)
Quarter: 2010Q2

REPORT INFORMATION
  Report Type: 
  Country: None (occurrence: None)
  Receive Date: 20100629
  Receipt Date: 20100111
  Transmission Date: 20101027
  Serious: Yes (Hospitalization)
  Sender: FDA-Public Use
  Company Number: US-ROCHE-571710

PATIENT
  Sex: Female
  Weight: 1.9 kg

DRUGS (2)
  1. PEGINTERFERON ALFA-2A [Suspect]
     Indication: HEPATITIS C
     Route: 064
     Dates: start: 20071130
  2. RIBASPHERE [Suspect]
     Indication: HEPATITIS C
     Route: 064
     Dates: start: 20071130, end: 20080620

REACTIONS (4)
  - BLOOD BILIRUBIN INCREASED [None]
  - DRUG EXPOSURE DURING PREGNANCY [None]
  - PREMATURE BABY [None]
  - RESPIRATORY DISTRESS [None]
